FAERS Safety Report 5429137-5 (Version None)
Quarter: 2007Q3

REPORT INFORMATION
  Report Type: 
  Country: None (occurrence: None)
  Receive Date: 20070829
  Receipt Date: 20070821
  Transmission Date: 20080115
  Serious: Yes (Death, Hospitalization)
  Sender: FDA-Public Use
  Company Number: US-ABBOTT-07P-163-0378465-00

PATIENT
  Age: 70 Year
  Sex: Female

DRUGS (2)
  1. WARFARIN [Suspect]
     Indication: ATRIAL FIBRILLATION
  2. LEVOFLOXACIN [Interacting]
     Indication: LOBAR PNEUMONIA
     Dosage: NOT REPORTED

REACTIONS (2)
  - DRUG INTERACTION [None]
  - PERICARDIAL HAEMORRHAGE [None]
